FAERS Safety Report 10081302 (Version 1)
Quarter: 2014Q2

REPORT INFORMATION
  Report Type: Spontaneous
  Country: US (occurrence: US)
  Receive Date: 20140416
  Receipt Date: 20140416
  Transmission Date: 20141212
  Serious: Yes (Other)
  Sender: FDA-Public Use
  Company Number: US-JNJFOC-20140407620

PATIENT
  Sex: Female
  Weight: 81.65 kg

DRUGS (5)
  1. REMICADE [Suspect]
     Indication: CROHN^S DISEASE
     Route: 042
     Dates: start: 20140326
  2. REMICADE [Suspect]
     Indication: CROHN^S DISEASE
     Route: 042
     Dates: start: 199811, end: 201309
  3. OXYCODONE [Concomitant]
     Indication: PAIN
     Route: 048
  4. CYMBALTA [Concomitant]
     Indication: SLEEP DISORDER
     Route: 048
  5. CYMBALTA [Concomitant]
     Indication: PAIN
     Route: 048

REACTIONS (6)
  - Weight increased [Not Recovered/Not Resolved]
  - Pyrexia [Recovered/Resolved]
  - Arthropathy [Recovered/Resolved]
  - Vein disorder [Unknown]
  - Lymphadenopathy [Recovered/Resolved]
  - Blood test abnormal [Unknown]
